FAERS Safety Report 7493114-3 (Version None)
Quarter: 2011Q2

REPORT INFORMATION
  Report Type: 
  Country: None (occurrence: None)
  Receive Date: 20110519
  Receipt Date: 20110519
  Transmission Date: 20111010
  Serious: Yes (Other)
  Sender: FDA-Public Use
  Company Number: None

PATIENT
  Age: 58 Year
  Sex: Female

DRUGS (2)
  1. ENBREL [Suspect]
     Indication: RHEUMATOID ARTHRITIS
     Dosage: 25MG Q4-5DAYS SQ
     Route: 058
     Dates: start: 20110518
  2. ENBREL [Suspect]
     Indication: RHEUMATOID ARTHRITIS
     Dosage: 25MG Q4-5DAYS SQ
     Route: 058
     Dates: start: 20101110

REACTIONS (2)
  - SKIN REACTION [None]
  - CONTUSION [None]
